FAERS Safety Report 5003562-9 (Version None)
Quarter: 2006Q2

REPORT INFORMATION
  Report Type: 
  Country: None (occurrence: None)
  Receive Date: 20060511
  Receipt Date: 20060425
  Transmission Date: 20061013
  Serious: Yes (Hospitalization)
  Sender: FDA-Public Use
  Company Number: CLOF-10210

PATIENT
  Age: 67 Year
  Sex: Male

DRUGS (11)
  1. CLOFARABINE [Suspect]
     Indication: ACUTE MYELOID LEUKAEMIA
     Dosage: 25 MG/M2 DAILY
  2. DAUNORUBICIN HCL [Suspect]
     Indication: ACUTE MYELOID LEUKAEMIA
     Dosage: 50 MG/M2 DAILY
  3. NICOTINE PATCHES [Concomitant]
  4. ALLOPURINOL [Concomitant]
  5. CYLIZINE [Concomitant]
  6. ONDENSARTAN [Concomitant]
  7. HALOPERIDOL [Concomitant]
  8. CO-TRIMAZOLE [Concomitant]
  9. ITRANCONAZOLE [Concomitant]
  10. TRIMETHORPRIN [Concomitant]
  11. COLISTIN [Concomitant]

REACTIONS (12)
  - ABNORMAL DREAMS [None]
  - AGITATION [None]
  - CATHETER RELATED INFECTION [None]
  - CEREBRAL ISCHAEMIA [None]
  - CONFUSIONAL STATE [None]
  - DYSARTHRIA [None]
  - NEUTROPENIC SEPSIS [None]
  - PARANOIA [None]
  - PLATELET COUNT DECREASED [None]
  - RASH [None]
  - TREMOR [None]
  - WHITE BLOOD CELL COUNT DECREASED [None]
